FAERS Safety Report 5133555-2 (Version None)
Quarter: 2006Q4

REPORT INFORMATION
  Report Type: 
  Country: None (occurrence: None)
  Receive Date: 20061024
  Receipt Date: 20061019
  Transmission Date: 20070319
  Serious: Yes (Hospitalization)
  Sender: FDA-Public Use
  Company Number: FR-BRISTOL-MYERS SQUIBB COMPANY-13548862

PATIENT
  Age: 62 Year
  Sex: Female

DRUGS (5)
  1. COUMADIN [Suspect]
     Indication: THROMBOSIS
     Route: 048
     Dates: start: 20060615, end: 20060927
  2. DEROXAT [Suspect]
     Dates: start: 20060803
  3. OFLOCET [Suspect]
     Indication: SEPSIS
     Dates: start: 20060910, end: 20060926
  4. ROCEPHIN [Suspect]
     Indication: SEPSIS
     Dates: start: 20060910
  5. ORACILLINE [Suspect]
     Indication: SPLENECTOMY
     Dates: start: 20060517

REACTIONS (2)
  - ACCIDENTAL OVERDOSE [None]
  - GASTROINTESTINAL HAEMORRHAGE [None]
